FAERS Safety Report 9068442 (Version 1)
Quarter: 2013Q1

REPORT INFORMATION
  Report Type: Spontaneous
  Country: US (occurrence: US)
  Receive Date: 20130128
  Receipt Date: 20130128
  Transmission Date: 20140127
  Serious: Yes (Death)
  Sender: FDA-Public Use
  Company Number: PHHY2013US007074

PATIENT
  Age: 61 Year
  Sex: Female

DRUGS (4)
  1. METOPROLOL [Suspect]
     Dosage: INGESTIONAL
  2. TRAZODONE [Suspect]
  3. CYCLOBENZAPRINE [Suspect]
  4. FLUOXETINE [Suspect]

REACTIONS (1)
  - Completed suicide [Fatal]
